FAERS Safety Report 9477481 (Version 3)
Quarter: 2013Q4

REPORT INFORMATION
  Report Type: Spontaneous
  Country: US (occurrence: US)
  Receive Date: 20130827
  Receipt Date: 20131017
  Transmission Date: 20140711
  Serious: No
  Sender: FDA-Public Use
  Company Number: US-009507513-1308USA011272

PATIENT
  Age: 31 Year
  Sex: Female
  Weight: 44.9 kg

DRUGS (2)
  1. NEXPLANON [Suspect]
     Indication: CONTRACEPTION
     Dosage: 1 DF, UNK
     Route: 059
     Dates: start: 20130113, end: 20130815
  2. NEXPLANON [Suspect]
     Dosage: 1 DF, UNK
     Route: 059
     Dates: start: 20120913, end: 20130130

REACTIONS (3)
  - Limb discomfort [Recovered/Resolved]
  - Device breakage [Recovered/Resolved]
  - Device breakage [Recovered/Resolved]
